FAERS Safety Report 8859825 (Version 1)
Quarter: 2012Q4

REPORT INFORMATION
  Report Type: 
  Country: US (occurrence: US)
  Receive Date: 20121025
  Receipt Date: 20121025
  Transmission Date: 20130627
  Serious: No
  Sender: FDA-Public Use
  Company Number: US-ABBOTT-11P-163-0873058-00

PATIENT
  Age: 29 Year
  Sex: Female

DRUGS (1)
  1. LUPRON DEPOT 3.75 MG [Suspect]
     Indication: IN VITRO FERTILISATION

REACTIONS (2)
  - Paraesthesia [Not Recovered/Not Resolved]
  - Paraesthesia [Not Recovered/Not Resolved]
